FAERS Safety Report 5502907-0 (Version None)
Quarter: 2007Q4

REPORT INFORMATION
  Report Type: 
  Country: None (occurrence: None)
  Receive Date: 20071029
  Receipt Date: 20071029
  Transmission Date: 20080405
  Serious: Yes (Life-Threatening)
  Sender: FDA-Public Use
  Company Number: None

PATIENT
  Age: 61 Year
  Sex: Male
  Weight: 104.3273 kg

DRUGS (2)
  1. LANTUS [Suspect]
     Indication: DIABETES MELLITUS
     Dosage: 65 UNITS  TWICE A DAY SQ
     Route: 058
     Dates: start: 20061015, end: 20071027
  2. HUMALOG [Suspect]
     Indication: DIABETES MELLITUS
     Dosage: 36 UNITS AM 25 PM  TWICE A DAY  SQ
     Route: 058
     Dates: start: 20070316, end: 20071027

REACTIONS (5)
  - DRUG DOSE OMISSION [None]
  - HYPOGLYCAEMIA [None]
  - INCORRECT DOSE ADMINISTERED [None]
  - MEDICATION ERROR [None]
  - PHARMACEUTICAL PRODUCT COMPLAINT [None]
